FAERS Safety Report 6534293-1 (Version None)
Quarter: 2010Q1

REPORT INFORMATION
  Report Type: 
  Country: None (occurrence: None)
  Receive Date: 20100112
  Receipt Date: 20091228
  Transmission Date: 20100710
  Serious: Yes (Hospitalization)
  Sender: FDA-Public Use
  Company Number: US-MYLANLABS-2009S1018395

PATIENT
  Sex: Female

DRUGS (2)
  1. RISPERIDONE TABLETS USP [Suspect]
  2. TRIHEXYPHENIDYL HCL [Suspect]

REACTIONS (2)
  - ADVERSE EVENT [None]
  - DRUG INEFFECTIVE [None]
